FAERS Safety Report 7286232-6 (Version None)
Quarter: 2011Q1

REPORT INFORMATION
  Report Type: 
  Country: None (occurrence: None)
  Receive Date: 20110210
  Receipt Date: 20110202
  Transmission Date: 20110831
  Serious: Yes (Hospitalization)
  Sender: FDA-Public Use
  Company Number: PHHY2011ES07897

PATIENT
  Age: 2 Year
  Sex: Female

DRUGS (3)
  1. CERTICAN [Suspect]
     Dosage: UNK
     Route: 048
     Dates: start: 20101026, end: 20101224
  2. URBASON [Interacting]
     Dosage: 16 MG,
  3. MYFORTIC [Interacting]
     Dosage: 180 MG, BID

REACTIONS (3)
  - MUCOSAL INFLAMMATION [None]
  - PYREXIA [None]
  - DRUG INTERACTION [None]
